FAERS Safety Report 8961282 (Version 1)
Quarter: 2012Q4

REPORT INFORMATION
  Report Type: 
  Country: US (occurrence: US)
  Receive Date: 20121212
  Receipt Date: 20121212
  Transmission Date: 20130627
  Serious: Yes (Other)
  Sender: FDA-Public Use
  Company Number: US-009507513-1212USA003435

PATIENT
  Sex: Male
  Weight: 77.98 kg

DRUGS (3)
  1. ZOCOR [Suspect]
     Indication: BLOOD CHOLESTEROL INCREASED
     Dosage: UNK
     Route: 048
     Dates: start: 1992, end: 1992
  2. FLUOXETINE HYDROCHLORIDE [Concomitant]
     Indication: ANXIETY
     Dosage: 20 mg, qd
     Route: 048
  3. FLUOXETINE HYDROCHLORIDE [Concomitant]
     Indication: DEPRESSION

REACTIONS (4)
  - Angioplasty [Recovered/Resolved]
  - Arterial occlusive disease [Recovered/Resolved]
  - Pain [Recovered/Resolved]
  - Adverse event [Unknown]
